FAERS Safety Report 8579989-5 (Version None)
Quarter: 2012Q3

REPORT INFORMATION
  Report Type: 
  Country: None (occurrence: None)
  Receive Date: 20120808
  Receipt Date: 20120730
  Transmission Date: 20120928
  Serious: No
  Sender: FDA-Public Use
  Company Number: US-ASTRAZENECA-2012SE54017

PATIENT
  Age: 58 Year
  Sex: Male
  Weight: 117.9 kg

DRUGS (1)
  1. NEXIUM [Suspect]
     Indication: GASTROOESOPHAGEAL REFLUX DISEASE
     Dosage: TWO TABLETS DAILY
     Route: 048

REACTIONS (3)
  - FATIGUE [None]
  - DYSPNOEA [None]
  - OFF LABEL USE [None]
